FAERS Safety Report 10195645 (Version 1)
Quarter: 2014Q2

REPORT INFORMATION
  Report Type: Spontaneous
  Country: US (occurrence: US)
  Receive Date: 20140527
  Receipt Date: 20140527
  Transmission Date: 20141212
  Serious: Yes (Hospitalization)
  Sender: FDA-Public Use
  Company Number: US-009507513-1405USA010295

PATIENT
  Sex: Female

DRUGS (1)
  1. PRINIVIL [Suspect]
     Dosage: STRENGTH 20MG
     Route: 048

REACTIONS (1)
  - Syncope [Unknown]
